FAERS Safety Report 17857029 (Version 1)
Quarter: 2020Q2

REPORT INFORMATION
  Report Type: Spontaneous
  Country: US (occurrence: US)
  Receive Date: 20200603
  Receipt Date: 20200603
  Transmission Date: 20200714
  Serious: Yes (Other)
  Sender: FDA-Public Use
  Company Number: US-ROCHE-2297356

PATIENT
  Age: 36 Week
  Sex: Male
  Weight: 2.15 kg

DRUGS (2)
  1. DEXTROSE. [Concomitant]
     Active Substance: DEXTROSE
     Route: 067
  2. VALGANCICLOVIR. [Suspect]
     Active Substance: VALGANCICLOVIR
     Indication: CONGENITAL CYTOMEGALOVIRUS INFECTION
     Route: 065

REACTIONS (1)
  - Neutropenia [Unknown]
